FAERS Safety Report 12389015 (Version 1)
Quarter: 2016Q2

REPORT INFORMATION
  Report Type: Spontaneous
  Country: US (occurrence: None)
  Receive Date: 20160519
  Receipt Date: 20160519
  Transmission Date: 20160815
  Serious: Yes (Hospitalization)
  Sender: FDA-Public Use
  Company Number: None

PATIENT
  Age: 68 Year
  Sex: Male

DRUGS (10)
  1. MONTELUKAST [Concomitant]
     Active Substance: MONTELUKAST SODIUM
  2. RHASTENDE [Concomitant]
  3. NYSTATIN. [Concomitant]
     Active Substance: NYSTATIN
  4. PANTOPRAZOLE [Concomitant]
     Active Substance: PANTOPRAZOLE SODIUM
  5. PREDNISONE. [Concomitant]
     Active Substance: PREDNISONE
  6. TOBRAMYCIN 300MG AKORN [Suspect]
     Active Substance: TOBRAMYCIN
     Indication: BRONCHIECTASIS
     Dosage: 300MG BID NEB
     Dates: start: 20160329
  7. CACTINEX [Concomitant]
  8. BUPROPION. [Concomitant]
     Active Substance: BUPROPION
  9. LINEZOLID. [Concomitant]
     Active Substance: LINEZOLID
  10. ALPRAZOLAM. [Concomitant]
     Active Substance: ALPRAZOLAM

REACTIONS (2)
  - Hospitalisation [None]
  - Disease complication [None]

NARRATIVE: CASE EVENT DATE: 20160517
